FAERS Safety Report 4544917-6 (Version None)
Quarter: 2005Q1

REPORT INFORMATION
  Report Type: 
  Country: None (occurrence: None)
  Receive Date: 20050104
  Receipt Date: 20041221
  Transmission Date: 20050727
  Serious: Yes (Other)
  Sender: FDA-Public Use
  Company Number: 2004-UK-01396UK(0)

PATIENT
  Age: 39 Year
  Sex: Female

DRUGS (3)
  1. VIRAMUNE [Suspect]
     Indication: HIV INFECTION
     Dosage: 400 MG (200 MG, MODIFIED CASE NARRATIVE
     Route: 048
     Dates: start: 20040426
  2. COMBIVIR [Suspect]
     Indication: HIV INFECTION
     Dosage: 2 ANZ (TWICE DAILY)
     Route: 048
     Dates: start: 20040426
  3. SEPTRIM (BACTRIM) [Concomitant]

REACTIONS (2)
  - MENSTRUATION IRREGULAR [None]
  - MOOD SWINGS [None]
